FAERS Safety Report 5801475-3 (Version None)
Quarter: 2008Q3

REPORT INFORMATION
  Report Type: 
  Country: None (occurrence: None)
  Receive Date: 20080703
  Receipt Date: 20080703
  Transmission Date: 20090109
  Serious: No
  Sender: FDA-Public Use
  Company Number: None

PATIENT
  Age: 56 Year
  Sex: Female
  Weight: 63.05 kg

DRUGS (1)
  1. ZICAM COLD REMEDY NASAL GEL PUMP ? MATRIXX [Suspect]
     Indication: NASAL CONGESTION
     Dosage: 1 SPRAY PER NOSE ONCE
     Route: 045
     Dates: start: 20080327, end: 20080327

REACTIONS (5)
  - AGEUSIA [None]
  - ANOSMIA [None]
  - LACRIMATION INCREASED [None]
  - NASAL DISCOMFORT [None]
  - RHINORRHOEA [None]
